FAERS Safety Report 8919035 (Version 1)
Quarter: 2012Q4

REPORT INFORMATION
  Report Type: Spontaneous
  Country: NL (occurrence: None)
  Receive Date: 20121114
  Receipt Date: 20121114
  Transmission Date: 20130627
  Serious: Yes (Other)
  Sender: FDA-Public Use
  Company Number: 2012000244

PATIENT
  Age: 66 Year
  Sex: Female

DRUGS (2)
  1. ACEON (PERINDOPRIL ERBUMINE) TABLET [Suspect]
     Indication: HYPERTENSION
     Route: 048
     Dates: start: 20080225
  2. SITAGLIPTIN [Suspect]
     Indication: DIABETES MELLITUS NON-INSULIN-DEPENDENT
     Route: 048
     Dates: start: 20120605, end: 20120626

REACTIONS (2)
  - Blood glucose increased [None]
  - Renal impairment [None]
